FAERS Safety Report 11715521 (Version 2)
Quarter: 2015Q4

REPORT INFORMATION
  Report Type: Spontaneous
  Country: US (occurrence: US)
  Receive Date: 20151104
  Receipt Date: 20151110
  Transmission Date: 20160304
  Serious: No
  Sender: FDA-Public Use
  Company Number: US-ELI_LILLY_AND_COMPANY-US201104004291

PATIENT
  Age: 62 Year
  Sex: Female

DRUGS (7)
  1. CALCIUM CARBONATE. [Concomitant]
     Active Substance: CALCIUM CARBONATE
     Dosage: 1500 MG, QD
  2. CALCIUM CARBONATE. [Concomitant]
     Active Substance: CALCIUM CARBONATE
     Dosage: 1000 MG, QD
  3. FORTEO [Suspect]
     Active Substance: TERIPARATIDE
     Dosage: 20 UG, DAILY (1/D)
  4. FORTEO [Suspect]
     Active Substance: TERIPARATIDE
     Dosage: 20 UG, QD
  5. CALCIUM CARBONATE. [Concomitant]
     Active Substance: CALCIUM CARBONATE
     Dosage: 800 MG, QD
  6. FORTEO [Suspect]
     Active Substance: TERIPARATIDE
     Dosage: 20 UG, QD
  7. FORTEO [Suspect]
     Active Substance: TERIPARATIDE
     Indication: OSTEOPOROSIS
     Dosage: 20 UG, DAILY (1/D)
     Dates: start: 20110201

REACTIONS (22)
  - Arthralgia [Unknown]
  - Nausea [Not Recovered/Not Resolved]
  - Myalgia [Unknown]
  - Movement disorder [Unknown]
  - Dizziness [Unknown]
  - Pain in extremity [Unknown]
  - Neck pain [Unknown]
  - Fatigue [Unknown]
  - Exercise tolerance decreased [Unknown]
  - Decreased interest [Unknown]
  - Drug dose omission [Unknown]
  - Weight increased [Unknown]
  - Dyspnoea [Unknown]
  - Depressed mood [Unknown]
  - Muscular weakness [Unknown]
  - Feeling abnormal [Recovering/Resolving]
  - Fall [Unknown]
  - Headache [Unknown]
  - Discomfort [Unknown]
  - Anxiety [Unknown]
  - Pain [Unknown]
  - Decreased activity [Unknown]

NARRATIVE: CASE EVENT DATE: 20110412
